FAERS Safety Report 4325242-5 (Version None)
Quarter: 2004Q1

REPORT INFORMATION
  Report Type: 
  Country: None (occurrence: None)
  Receive Date: 20040324
  Receipt Date: 20040315
  Transmission Date: 20041129
  Serious: Yes (Life-Threatening, Hospitalization)
  Sender: FDA-Public Use
  Company Number: 2004203959AT

PATIENT
  Age: 22 Year
  Sex: Male
  Weight: 54.4316 kg

DRUGS (6)
  1. ZYVOXID INJ (LINEZOLID) SOLUTION, STERILE, 600MG [Suspect]
     Indication: ENDOCARDITIS STAPHYLOCOCCAL
     Dosage: 600 MG, TID, IV
     Route: 042
  2. DIFLUCAN [Concomitant]
  3. HEPARIN [Concomitant]
  4. ELECTROLYTE SOLUTIONS [Concomitant]
  5. ACID BLOCKERS [Concomitant]
  6. LIQUID [Concomitant]

REACTIONS (4)
  - CARDIAC VALVE DISEASE [None]
  - MYOCARDIAC ABSCESS [None]
  - VENTRICULAR FIBRILLATION [None]
  - VENTRICULAR HYPOKINESIA [None]
